FAERS Safety Report 13859668 (Version 2)
Quarter: 2017Q3

REPORT INFORMATION
  Report Type: Spontaneous
  Country: IT (occurrence: IT)
  Receive Date: 20170811
  Receipt Date: 20170901
  Transmission Date: 20171127
  Serious: Yes (Other)
  Sender: FDA-Public Use
  Company Number: IT-VIFOR (INTERNATIONAL) INC.-VIT-2017-08331

PATIENT
  Age: 78 Year
  Sex: Male

DRUGS (9)
  1. TRADJENTA [Concomitant]
     Active Substance: LINAGLIPTIN
  2. LEVEMIR [Concomitant]
     Active Substance: INSULIN DETEMIR
     Dosage: LESS THAN 100
  3. ROCALTROL [Concomitant]
     Active Substance: CALCITRIOL
  4. LASIX [Concomitant]
     Active Substance: FUROSEMIDE
  5. ZYLORIC [Concomitant]
     Active Substance: ALLOPURINOL
  6. GLUCOBAY [Concomitant]
     Active Substance: ACARBOSE
  7. DIDROGYL [Concomitant]
     Active Substance: CALCIFEDIOL
  8. VELPHORO [Suspect]
     Active Substance: FERRIC OXYHYDROXIDE
     Indication: HYPERPHOSPHATAEMIA
     Route: 048
     Dates: start: 20170501, end: 20170510
  9. SODIUM BICARBONATE. [Concomitant]
     Active Substance: SODIUM BICARBONATE

REACTIONS (2)
  - Diarrhoea [Recovering/Resolving]
  - Hypotension [Recovering/Resolving]

NARRATIVE: CASE EVENT DATE: 20170510
